FAERS Safety Report 10978105 (Version 2)
Quarter: 2015Q2

REPORT INFORMATION
  Report Type: Spontaneous
  Country: TW (occurrence: TW)
  Receive Date: 20150402
  Receipt Date: 20150608
  Transmission Date: 20150821
  Serious: Yes (Other)
  Sender: FDA-Public Use
  Company Number: PHHY2014TW088039

PATIENT
  Sex: Female
  Weight: 52 kg

DRUGS (1)
  1. EXJADE [Suspect]
     Active Substance: DEFERASIROX
     Indication: THALASSAEMIA BETA
     Dosage: UNK UKN, UNK
     Route: 048
     Dates: start: 20060429, end: 20140709

REACTIONS (2)
  - Maternal exposure during pregnancy [Unknown]
  - Pelvic deformity [Unknown]

NARRATIVE: CASE EVENT DATE: 2014
